FAERS Safety Report 25929803 (Version 1)
Quarter: 2025Q4

REPORT INFORMATION
  Report Type: Spontaneous
  Country: IN (occurrence: IN)
  Receive Date: 20251016
  Receipt Date: 20251016
  Transmission Date: 20260118
  Serious: Yes (Life-Threatening, Hospitalization)
  Sender: MYLAN
  Company Number: IN-MYLANLABS-2025M1087464

PATIENT
  Age: 37 Year
  Sex: Female

DRUGS (8)
  1. HYDROCORTISONE [Suspect]
     Active Substance: HYDROCORTISONE
     Indication: Anaphylaxis treatment
     Dosage: 200 MILLIGRAM
  2. RANITIDINE [Suspect]
     Active Substance: RANITIDINE
     Indication: Anaphylaxis treatment
     Dosage: 50 MILLIGRAM
  3. ALBUTEROL [Suspect]
     Active Substance: ALBUTEROL
     Indication: Bronchospasm
     Dosage: 5 MILLIGRAM, NEBULISED
  4. SODIUM CHLORIDE [Suspect]
     Active Substance: SODIUM CHLORIDE
     Indication: Resuscitation
     Dosage: 1 LITER
  5. IGURATIMOD [Concomitant]
     Active Substance: IGURATIMOD
     Indication: Rheumatoid arthritis
     Dosage: 25 MILLIGRAM, QD
  6. METHOTREXATE [Concomitant]
     Active Substance: METHOTREXATE
     Indication: Rheumatoid arthritis
     Dosage: 15 MILLIGRAM, QD
  7. FOLIC ACID [Concomitant]
     Active Substance: FOLIC ACID
     Indication: Vitamin supplementation
     Dosage: UNK
  8. EPINEPHRINE [Concomitant]
     Active Substance: EPINEPHRINE
     Indication: Anaphylaxis treatment
     Dosage: 0.5 MILLIGRAM, 5 MINUTES, (1:1000); TOTAL OF THREE DOSES

REACTIONS (1)
  - Drug ineffective [Unknown]
